FAERS Safety Report 17751095 (Version 1)
Quarter: 2020Q2

REPORT INFORMATION
  Report Type: Spontaneous
  Country: US (occurrence: US)
  Receive Date: 20200506
  Receipt Date: 20200506
  Transmission Date: 20200714
  Serious: Yes (Death, Life-Threatening, Hospitalization)
  Sender: FDA-Public Use
  Company Number: None

PATIENT
  Age: 52 Year
  Sex: Male
  Weight: 145.7 kg

DRUGS (23)
  1. ALBUMIN [Concomitant]
     Active Substance: ALBUMIN HUMAN
  2. ALBUTEROL. [Concomitant]
     Active Substance: ALBUTEROL
  3. ASPIRIN. [Concomitant]
     Active Substance: ASPIRIN
  4. CALCIUM GLUCONATE. [Concomitant]
     Active Substance: CALCIUM GLUCONATE
  5. SARILUMAB [Suspect]
     Active Substance: SARILUMAB
     Indication: ADJUVANT THERAPY
     Dosage: ?          OTHER FREQUENCY:ONCE;?
     Route: 040
     Dates: start: 20200406, end: 20200406
  6. HEPARIN [Concomitant]
     Active Substance: HEPARIN SODIUM
  7. EPTIFIBATIDE. [Concomitant]
     Active Substance: EPTIFIBATIDE
  8. ACETAMINOPHEN. [Concomitant]
     Active Substance: ACETAMINOPHEN
  9. CEFTRIAXONE. [Concomitant]
     Active Substance: CEFTRIAXONE
  10. DEXMEDATOMIDINE [Concomitant]
  11. DILTIAZEM. [Concomitant]
     Active Substance: DILTIAZEM
  12. ENOXAPARIN [Concomitant]
     Active Substance: ENOXAPARIN
  13. EPINEPHRINE. [Concomitant]
     Active Substance: EPINEPHRINE
  14. SARILUMAB [Suspect]
     Active Substance: SARILUMAB
     Indication: COVID-19 TREATMENT
     Dosage: ?          OTHER FREQUENCY:ONCE;?
     Route: 040
     Dates: start: 20200406, end: 20200406
  15. AMIODARONE [Concomitant]
     Active Substance: AMIODARONE
  16. ATORVASTATIN [Concomitant]
     Active Substance: ATORVASTATIN
  17. FUROSEMIDE. [Concomitant]
     Active Substance: FUROSEMIDE
  18. ADENOSINE. [Concomitant]
     Active Substance: ADENOSINE
  19. AZITHROMYCIN ANHYDROUS. [Concomitant]
     Active Substance: AZITHROMYCIN ANHYDROUS
  20. BIVALIRUDIN. [Concomitant]
     Active Substance: BIVALIRUDIN
  21. CEFEPIME [Concomitant]
     Active Substance: CEFEPIME HYDROCHLORIDE
  22. DOCUSATE [Concomitant]
     Active Substance: DOCUSATE
  23. FENTANYL. [Concomitant]
     Active Substance: FENTANYL

REACTIONS (10)
  - Lactic acidosis [None]
  - Off label use [None]
  - Staphylococcal infection [None]
  - Hepatic enzyme increased [None]
  - Sputum culture positive [None]
  - Acute myocardial infarction [None]
  - Pneumonia bacterial [None]
  - Serratia test positive [None]
  - Intestinal ischaemia [None]
  - Cardiac arrest [None]

NARRATIVE: CASE EVENT DATE: 20200501
